FAERS Safety Report 5389109-6 (Version None)
Quarter: 2007Q3

REPORT INFORMATION
  Report Type: 
  Country: None (occurrence: None)
  Receive Date: 20070717
  Receipt Date: 20070705
  Transmission Date: 20080115
  Serious: Yes (Life-Threatening, Other)
  Sender: FDA-Public Use
  Company Number: JP-PFIZER INC-2007055624

PATIENT
  Age: 24 Year
  Sex: Male

DRUGS (5)
  1. SOLANAX [Suspect]
     Route: 048
  2. VEGETAMIN [Concomitant]
     Route: 048
  3. SILECE [Concomitant]
  4. SOMELIN [Concomitant]
     Route: 048
  5. RESLIN [Concomitant]
     Route: 048

REACTIONS (3)
  - CARDIAC ARREST [None]
  - HYPERKALAEMIA [None]
  - RESPIRATORY ARREST [None]
